FAERS Safety Report 17013823 (Version 3)
Quarter: 2020Q4

REPORT INFORMATION
  Report Type: Spontaneous
  Country: JP (occurrence: JP)
  Receive Date: 20191111
  Receipt Date: 20201127
  Transmission Date: 20210113
  Serious: Yes (Other)
  Sender: FDA-Public Use
  Company Number: JP-BRISTOL-MYERS SQUIBB COMPANY-BMS-2019-106093

PATIENT
  Age: 83 Year
  Sex: Female
  Weight: 41.4 kg

DRUGS (2)
  1. ORENCIA [Suspect]
     Active Substance: ABATACEPT
     Dosage: 500 MILLIGRAM
     Route: 041
     Dates: start: 201912
  2. ORENCIA [Suspect]
     Active Substance: ABATACEPT
     Indication: RHEUMATOID ARTHRITIS
     Dosage: 500 MILLIGRAM
     Route: 041
     Dates: start: 20180601, end: 20191101

REACTIONS (1)
  - Hepatitis B antibody positive [Unknown]

NARRATIVE: CASE EVENT DATE: 20201120
